FAERS Safety Report 5865174-4 (Version None)
Quarter: 2008Q3

REPORT INFORMATION
  Report Type: 
  Country: None (occurrence: None)
  Receive Date: 20080829
  Receipt Date: 20080821
  Transmission Date: 20090109
  Serious: Yes (Hospitalization)
  Sender: FDA-Public Use
  Company Number: A0745227A

PATIENT
  Age: 41 Year
  Sex: Male
  Weight: 72.7 kg

DRUGS (2)
  1. AVANDIA [Suspect]
     Dosage: 8MG TWICE PER DAY
     Route: 065
     Dates: start: 20060701, end: 20070801
  2. GLUCOTROL [Concomitant]
     Dates: start: 19910101, end: 20070101

REACTIONS (1)
  - MYOCARDIAL INFARCTION [None]
